FAERS Safety Report 18352747 (Version 1)
Quarter: 2020Q4

REPORT INFORMATION
  Report Type: Spontaneous
  Country: US (occurrence: US)
  Receive Date: 20201006
  Receipt Date: 20201006
  Transmission Date: 20210114
  Serious: No
  Sender: FDA-Public Use
  Company Number: US-ALLERGAN-2001799US

PATIENT
  Sex: Male

DRUGS (8)
  1. MELATONIN [Concomitant]
     Active Substance: MELATONIN
     Dosage: 10 MG
  2. L METHYLFOLATE [Concomitant]
     Indication: NEUROTRANSMITTER LEVEL ALTERED
  3. LINZESS [Suspect]
     Active Substance: LINACLOTIDE
     Indication: IRRITABLE BOWEL SYNDROME
     Dosage: 72 ?G, UNKNOWN
     Route: 048
     Dates: start: 201910
  4. LORAZEPAM. [Concomitant]
     Active Substance: LORAZEPAM
  5. VITAMINS [Concomitant]
     Active Substance: VITAMINS
  6. STOOL SOFTENER (DOCUSATE) [Concomitant]
     Active Substance: DOCUSATE
     Dosage: 3 DF
     Route: 048
  7. MIRALAX [Concomitant]
     Active Substance: POLYETHYLENE GLYCOL 3350
     Dosage: 1 TEASPOON
     Route: 048
  8. LAMOTRIGINE. [Concomitant]
     Active Substance: LAMOTRIGINE

REACTIONS (6)
  - Influenza like illness [Recovered/Resolved]
  - Nausea [Recovered/Resolved]
  - Diarrhoea [Recovering/Resolving]
  - Bowel movement irregularity [Recovering/Resolving]
  - Therapeutic response decreased [Unknown]
  - Gastrointestinal motility disorder [Recovering/Resolving]
